FAERS Safety Report 12443906 (Version 1)
Quarter: 2016Q2

REPORT INFORMATION
  Report Type: Spontaneous
  Country: US (occurrence: US)
  Receive Date: 20160607
  Receipt Date: 20160607
  Transmission Date: 20160815
  Serious: No
  Sender: FDA-Public Use
  Company Number: US-SA-2016SA046812

PATIENT
  Age: 72 Year
  Sex: Male

DRUGS (2)
  1. TOUJEO [Suspect]
     Active Substance: INSULIN GLARGINE
     Indication: TYPE 2 DIABETES MELLITUS
     Route: 065
     Dates: start: 20160203
  2. SOLOSTAR [Concomitant]
     Active Substance: DEVICE
     Dates: start: 20160203

REACTIONS (3)
  - Injection site pruritus [Unknown]
  - Injection site swelling [Unknown]
  - Injection site mass [Unknown]

NARRATIVE: CASE EVENT DATE: 201602
